FAERS Safety Report 21950375 (Version 1)
Quarter: 2023Q1

REPORT INFORMATION
  Report Type: Spontaneous
  Country: US (occurrence: None)
  Receive Date: 20230131
  Receipt Date: 20230131
  Transmission Date: 20230417
  Serious: No
  Sender: FDA-Public Use
  Company Number: None

PATIENT

DRUGS (1)
  1. TENECTEPLASE [Suspect]
     Active Substance: TENECTEPLASE

REACTIONS (4)
  - Circumstance or information capable of leading to medication error [None]
  - Product preparation error [None]
  - Product administration error [None]
  - Product availability issue [None]
